FAERS Safety Report 14222836 (Version 1)
Quarter: 2017Q4

REPORT INFORMATION
  Report Type: Spontaneous
  Country: US (occurrence: US)
  Receive Date: 20171124
  Receipt Date: 20171124
  Transmission Date: 20180321
  Serious: Yes (Other)
  Sender: FDA-Public Use
  Company Number: US-JNJFOC-20170924718

PATIENT
  Age: 73 Year
  Sex: Female
  Weight: 42.64 kg

DRUGS (3)
  1. BALSALAZIDE SODIUM [Concomitant]
     Active Substance: BALSALAZIDE
     Route: 065
     Dates: end: 20170922
  2. REMICADE [Suspect]
     Active Substance: INFLIXIMAB
     Indication: COLITIS ULCERATIVE
     Route: 042
     Dates: start: 201709
  3. REMICADE [Suspect]
     Active Substance: INFLIXIMAB
     Indication: COLITIS ULCERATIVE
     Route: 042
     Dates: start: 2017

REACTIONS (2)
  - Drug level decreased [Unknown]
  - Colitis ulcerative [Recovering/Resolving]

NARRATIVE: CASE EVENT DATE: 201709
